FAERS Safety Report 8334252-2 (Version None)
Quarter: 2012Q1

REPORT INFORMATION
  Report Type: 
  Country: None (occurrence: None)
  Receive Date: 20120329
  Receipt Date: 20100504
  Transmission Date: 20120608
  Serious: Yes (Other)
  Sender: FDA-Public Use
  Company Number: PHHY2010US23180

PATIENT
  Age: 89 Year
  Sex: Female
  Weight: 45.4 kg

DRUGS (9)
  1. THYROID THERAPY (NO INGREDIENTS/SUBSTANCES) [Concomitant]
  2. MULTI-VITAMINS [Concomitant]
  3. GLUCOSAMINE (GLUCOSAMINE) [Concomitant]
  4. ANTIHYPERTENSIVE DRUGS (NO INGREDIENTS/SUBSTANCES) [Concomitant]
  5. POTASSIUM CHLORIDE [Concomitant]
  6. EXELON [Suspect]
     Indication: DEMENTIA
     Dosage: 1 PATCH ONCE DAILY AND 1 PATCH EVERY 48 HOURS, TRANSDERMAL, 9.5 MG, QD, TRANSDERMAL
     Route: 062
     Dates: start: 20100212
  7. EXELON [Suspect]
     Indication: DEMENTIA
     Dosage: 1 PATCH ONCE DAILY AND 1 PATCH EVERY 48 HOURS, TRANSDERMAL, 9.5 MG, QD, TRANSDERMAL
     Route: 062
     Dates: end: 20100401
  8. LISINOPRIL [Concomitant]
  9. METOPROLOL TARTRATE [Concomitant]

REACTIONS (6)
  - RASH [None]
  - ASTHENIA [None]
  - FATIGUE [None]
  - HEART RATE IRREGULAR [None]
  - MALAISE [None]
  - HYPERTENSION [None]
